FAERS Safety Report 10077181 (Version 2)
Quarter: 2014Q2

REPORT INFORMATION
  Report Type: Spontaneous
  Country: JP (occurrence: JP)
  Receive Date: 20140414
  Receipt Date: 20140414
  Transmission Date: 20141212
  Serious: Yes (Life-Threatening, Other)
  Sender: FDA-Public Use
  Company Number: ALCN2013JP003895

PATIENT
  Age: 77 Year
  Sex: Female

DRUGS (1)
  1. FLUORESCITE [Suspect]
     Dosage: 1 DF, UNK
     Route: 031
     Dates: start: 20130419, end: 20130419

REACTIONS (2)
  - Anaphylactoid shock [Recovered/Resolved]
  - Decreased appetite [Recovered/Resolved]
